FAERS Safety Report 22355679 (Version 2)
Quarter: 2023Q4

REPORT INFORMATION
  Report Type: Report from Study
  Country: US (occurrence: US)
  Receive Date: 20230523
  Receipt Date: 20231214
  Transmission Date: 20240110
  Serious: Yes (Hospitalization, Other)
  Sender: FDA-Public Use
  Company Number: US-XERIS PHARMACEUTICALS-2022XER00127

PATIENT
  Age: 22 Year
  Sex: Female

DRUGS (4)
  1. KEVEYIS [Suspect]
     Active Substance: DICHLORPHENAMIDE
     Indication: Paralysis
     Dosage: 1 TABLET (50 MG), 1X/DAY
     Route: 048
     Dates: start: 20200415
  2. KEVEYIS [Suspect]
     Active Substance: DICHLORPHENAMIDE
     Dosage: 1 TABLET (50 MG), 1X/DAY
     Route: 048
  3. KEVEYIS [Suspect]
     Active Substance: DICHLORPHENAMIDE
     Dosage: 1 TABLET (50 MG), 1X/DAY
     Route: 048
  4. UNSPECIFIED INGREDIENT [Suspect]
     Active Substance: UNSPECIFIED INGREDIENT
     Dosage: UNK, 6X/DAY
     Route: 042

REACTIONS (12)
  - Anaemia [Unknown]
  - COVID-19 [Recovered/Resolved]
  - Blood potassium increased [Unknown]
  - Diabetic ketoacidosis [Recovered/Resolved]
  - Device related infection [Unknown]
  - Thrombosis [Unknown]
  - Hospitalisation [Unknown]
  - Product dose omission issue [Recovered/Resolved]
  - White blood cell count decreased [Unknown]
  - Thyroid hormones decreased [Unknown]
  - Paraesthesia [Recovered/Resolved]
  - Blood potassium decreased [Unknown]

NARRATIVE: CASE EVENT DATE: 20220101
